FAERS Safety Report 8531144-0 (Version None)
Quarter: 2012Q3

REPORT INFORMATION
  Report Type: 
  Country: None (occurrence: None)
  Receive Date: 20120723
  Receipt Date: 20120713
  Transmission Date: 20120928
  Serious: Yes (Hospitalization)
  Sender: FDA-Public Use
  Company Number: US-BAYER-2012-044166

PATIENT
  Age: 44 Year
  Sex: Female
  Weight: 100 kg

DRUGS (9)
  1. YAZ [Suspect]
     Indication: MENORRHAGIA
  2. HYDROCODONE BITARTRATE AND ACETAMINOPHEN [Concomitant]
     Dosage: 5/500 MG, UNK
     Dates: start: 20090818
  3. VICODIN [Concomitant]
     Indication: PAIN
     Dosage: UNK
  4. IUD NOS [Concomitant]
     Dosage: UNK
     Dates: start: 20020101, end: 20110101
  5. SPIRONOLACTONE [Concomitant]
     Dosage: UNK
  6. YAZ [Suspect]
     Indication: PREMENSTRUAL SYNDROME
     Dosage: UNK
     Dates: start: 20081114, end: 20090718
  7. VITAMINS NOS [Concomitant]
     Dosage: UNK
  8. ENOXAPARIN [Concomitant]
     Dosage: UNK
  9. TYLENOL [Concomitant]
     Dosage: UNK

REACTIONS (4)
  - PAIN [None]
  - THROMBOPHLEBITIS SUPERFICIAL [None]
  - INJURY [None]
  - PULMONARY EMBOLISM [None]
